FAERS Safety Report 26119240 (Version 1)
Quarter: 2025Q4

REPORT INFORMATION
  Report Type: Spontaneous
  Country: CO (occurrence: CO)
  Receive Date: 20251204
  Receipt Date: 20251204
  Transmission Date: 20260118
  Serious: Yes (Death, Hospitalization)
  Sender: SANDOZ
  Company Number: CO-002147023-NVSC2024CO144041

PATIENT
  Age: 79 Year
  Sex: Female
  Weight: 43 kg

DRUGS (1)
  1. EXELON [Suspect]
     Active Substance: RIVASTIGMINE TARTRATE
     Indication: Dementia Alzheimer^s type
     Dosage: 1 DOSAGE FORM, QD, (1 PATCH OF 9MG))
     Route: 062
     Dates: start: 20240512

REACTIONS (6)
  - Respiratory distress [Fatal]
  - Pneumonia [Fatal]
  - Cardio-respiratory arrest [Fatal]
  - Pyrexia [Not Recovered/Not Resolved]
  - Influenza [Not Recovered/Not Resolved]
  - Pain [Not Recovered/Not Resolved]

NARRATIVE: CASE EVENT DATE: 20240703
